FAERS Safety Report 13359337 (Version 2)
Quarter: 2017Q1

REPORT INFORMATION
  Report Type: Spontaneous
  Country: JP (occurrence: JP)
  Receive Date: 20170322
  Receipt Date: 20170322
  Transmission Date: 20170429
  Serious: Yes (Other)
  Sender: FDA-Public Use
  Company Number: JP-PFIZER INC-2017070491

PATIENT
  Age: 46 Year
  Sex: Female

DRUGS (4)
  1. LYRICA [Suspect]
     Active Substance: PREGABALIN
     Dosage: 25 MG, 2X/DAY
     Route: 048
     Dates: start: 20160510, end: 20161212
  2. LYRICA [Suspect]
     Active Substance: PREGABALIN
     Indication: HEADACHE
     Dosage: 75 MG, 2X/DAY
     Route: 048
     Dates: start: 20160216, end: 20160509
  3. LYRICA [Suspect]
     Active Substance: PREGABALIN
     Dosage: 100 MG, DAILY (25 MG IN THE MORNING, 75 MG IN THE EVENING)
     Route: 048
     Dates: start: 20161213
  4. EPERISONE [Concomitant]
     Active Substance: EPERISONE
     Indication: HEADACHE
     Dosage: 50 MG, 2X/DAY
     Route: 048
     Dates: start: 20160216

REACTIONS (2)
  - Product use issue [Unknown]
  - Myopia [Not Recovered/Not Resolved]

NARRATIVE: CASE EVENT DATE: 20160216
